FAERS Safety Report 12582054 (Version 4)
Quarter: 2016Q3

REPORT INFORMATION
  Report Type: Report from Study
  Country: RU (occurrence: RU)
  Receive Date: 20160722
  Receipt Date: 20160809
  Transmission Date: 20161109
  Serious: Yes (Death, Life-Threatening)
  Sender: FDA-Public Use
  Company Number: RU-ROCHE-1788735

PATIENT
  Age: 65 Year
  Sex: Male
  Weight: 57.55 kg

DRUGS (20)
  1. ALLOPURINOL. [Concomitant]
     Active Substance: ALLOPURINOL
     Route: 048
     Dates: start: 20160627, end: 20160703
  2. CHLOROPYRAMINUM [Concomitant]
     Indication: PREMEDICATION
     Route: 042
     Dates: start: 20160630, end: 20160701
  3. FUROSEMID [Concomitant]
     Active Substance: FUROSEMIDE
     Indication: HYPERKALAEMIA
     Route: 042
     Dates: start: 20160701, end: 20160702
  4. PLATELETS [Concomitant]
     Active Substance: HUMAN PLATELET, ALLOGENIC
     Dosage: 4 UNITS
     Route: 042
     Dates: start: 20160712, end: 20160712
  5. STEROFUNDIN ISOTONIC [Concomitant]
     Route: 042
     Dates: start: 20160610, end: 20160619
  6. GLUCOSE [Concomitant]
     Active Substance: DEXTROSE
     Route: 042
     Dates: start: 20160627, end: 20160630
  7. GLUCOSE [Concomitant]
     Active Substance: DEXTROSE
     Dosage: AND ASCORBINIC ACID 15%
     Route: 042
     Dates: start: 20160610, end: 20160619
  8. ALBUMIN [Concomitant]
     Active Substance: ALBUMIN HUMAN
     Indication: HYPOPROTEINAEMIA
     Route: 042
     Dates: start: 20160701, end: 20160701
  9. PLATELETS [Concomitant]
     Active Substance: HUMAN PLATELET, ALLOGENIC
     Dosage: 6 UNITS
     Route: 042
     Dates: start: 20160714, end: 20160714
  10. ENALAPRIL [Concomitant]
     Active Substance: ENALAPRIL
     Route: 048
     Dates: start: 20160711
  11. OBINUTUZUMAB [Suspect]
     Active Substance: OBINUTUZUMAB
     Indication: CHRONIC LYMPHOCYTIC LEUKAEMIA
     Dosage: MOST RECENT DOSE OF OBINUTUZUMAB 900 MG PRIOR TO AE ONSET 01/JUL/2016 (10:15)
     Route: 042
     Dates: start: 20160630
  12. ERYTHROCYTE TRANSFUSIONS [Concomitant]
     Indication: ANAEMIA
     Route: 042
     Dates: start: 20160712, end: 20160712
  13. RINGER^S SOLUTION [Concomitant]
     Active Substance: RINGER^S SOLUTION
     Route: 042
     Dates: start: 20160627, end: 20160630
  14. ACTRAPID [Concomitant]
     Active Substance: INSULIN HUMAN
     Dosage: 8 U
     Route: 058
     Dates: start: 20160702, end: 20160703
  15. ALLOPURINOL. [Concomitant]
     Active Substance: ALLOPURINOL
     Route: 048
     Dates: start: 20160610, end: 20160626
  16. DEXAMETHASONUM [Concomitant]
     Active Substance: DEXAMETHASONE
     Indication: PREMEDICATION
     Route: 042
     Dates: start: 20160630, end: 20160701
  17. ALBUMIN [Concomitant]
     Active Substance: ALBUMIN HUMAN
     Route: 042
     Dates: start: 20160709, end: 20160709
  18. CEFOTAXIME [Concomitant]
     Active Substance: CEFOTAXIME SODIUM
     Indication: INFECTION
     Route: 042
     Dates: start: 20160613, end: 20160616
  19. ALBUMIN [Concomitant]
     Active Substance: ALBUMIN HUMAN
     Indication: HYPOALBUMINAEMIA
     Route: 042
     Dates: start: 20160702, end: 20160702
  20. ALBUMIN [Concomitant]
     Active Substance: ALBUMIN HUMAN
     Route: 042
     Dates: start: 20160704, end: 20160704

REACTIONS (3)
  - Pneumonia fungal [Fatal]
  - Febrile neutropenia [Recovered/Resolved]
  - Gastrointestinal disorder [Recovered/Resolved]

NARRATIVE: CASE EVENT DATE: 20160704
